FAERS Safety Report 5460294-0 (Version None)
Quarter: 2007Q3

REPORT INFORMATION
  Report Type: 
  Country: None (occurrence: None)
  Receive Date: 20070919
  Receipt Date: 20070615
  Transmission Date: 20080115
  Serious: No
  Sender: FDA-Public Use
  Company Number: US-ASTRAZENECA-2007UW14455

PATIENT
  Age: 74 Year
  Sex: Female
  Weight: 79.4 kg

DRUGS (16)
  1. SEROQUEL [Suspect]
     Indication: SLEEP DISORDER
     Route: 048
  2. SEROQUEL [Suspect]
     Indication: ANXIETY
     Route: 048
  3. ALBUTEROL [Concomitant]
  4. LANTUS [Concomitant]
  5. TOPROL-XL [Concomitant]
     Route: 048
  6. LEVOTHYROXINE SODIUM [Concomitant]
  7. TEGRETOL-XR [Concomitant]
  8. HYZAAR [Concomitant]
  9. IMDUR [Concomitant]
  10. TIMOLOL MALEATE [Concomitant]
  11. DIAZEPAM [Concomitant]
  12. PLAVIX [Concomitant]
  13. AMARYL [Concomitant]
  14. PRAVACHOL [Concomitant]
  15. ASPIRIN [Concomitant]
  16. NASACORT [Concomitant]

REACTIONS (3)
  - APHONIA [None]
  - BRONCHITIS [None]
  - BRONCHOPNEUMONIA [None]
